FAERS Safety Report 4751588-2 (Version None)
Quarter: 2005Q3

REPORT INFORMATION
  Report Type: 
  Country: None (occurrence: None)
  Receive Date: 20050824
  Receipt Date: 20050816
  Transmission Date: 20060218
  Serious: Yes (Other)
  Sender: FDA-Public Use
  Company Number: GB-GLAXOSMITHKLINE-B0391459A

PATIENT
  Sex: Female

DRUGS (3)
  1. RETROVIR [Suspect]
     Indication: ANTIVIRAL PROPHYLAXIS
     Dosage: 250MG TWICE PER DAY
     Route: 048
     Dates: end: 20050714
  2. VIREAD [Suspect]
     Indication: ANTIVIRAL PROPHYLAXIS
     Dosage: 300MG PER DAY
     Route: 048
     Dates: end: 20050714
  3. KALETRA [Suspect]
     Indication: ANTIVIRAL PROPHYLAXIS
     Dosage: 3U TWICE PER DAY
     Route: 048
     Dates: end: 20050714

REACTIONS (4)
  - DRUG EXPOSURE DURING PREGNANCY [None]
  - HEPATITIS C [None]
  - LIVER FUNCTION TEST ABNORMAL [None]
  - NAUSEA [None]
